FAERS Safety Report 9124815 (Version 1)
Quarter: 2013Q1

REPORT INFORMATION
  Report Type: Report from Study
  Country: BR (occurrence: BR)
  Receive Date: 20130121
  Receipt Date: 20130121
  Transmission Date: 20140127
  Serious: Yes (Hospitalization, Other)
  Sender: FDA-Public Use
  Company Number: PHHO2012BR015195

PATIENT
  Age: 61 Year
  Sex: Male
  Weight: 63 kg

DRUGS (4)
  1. MYFORTIC [Suspect]
     Indication: IMMUNOSUPPRESSION
     Dosage: 720 MG, BID
     Route: 048
     Dates: start: 20120614, end: 20120823
  2. TACROLIMUS [Suspect]
     Indication: RENAL TRANSPLANT
     Dosage: 2 MG, BID AND 1 MG BID
     Route: 048
     Dates: start: 20120617, end: 20120823
  3. PREDNISONE [Suspect]
     Indication: IMMUNOSUPPRESSION
     Dosage: 20 MG, QD
     Route: 048
     Dates: start: 20120613, end: 20120823
  4. NO TREATMENT RECEIVED [Suspect]

REACTIONS (3)
  - Kidney transplant rejection [Recovering/Resolving]
  - BK virus infection [Recovering/Resolving]
  - Abdominal pain [Recovering/Resolving]
